FAERS Safety Report 10541322 (Version 2)
Quarter: 2014Q4

REPORT INFORMATION
  Report Type: Spontaneous
  Country: US (occurrence: None)
  Receive Date: 20141010
  Receipt Date: 20141205
  Transmission Date: 20150529
  Serious: No
  Sender: FDA-Public Use
  Company Number: 163-POMAL-14052875

PATIENT
  Age: 77 Year
  Sex: Male
  Weight: 72.58 kg

DRUGS (18)
  1. POLYETHYLENE GLYCOL (MACROGOL) (POWDER) [Concomitant]
  2. PRADAXA [Concomitant]
     Active Substance: DABIGATRAN ETEXILATE MESYLATE
  3. DIGOXIN. [Concomitant]
     Active Substance: DIGOXIN
  4. ACYCLOVIR. [Concomitant]
     Active Substance: ACYCLOVIR
  5. FINASTERIDE. [Concomitant]
     Active Substance: FINASTERIDE
  6. POMALYST [Suspect]
     Active Substance: POMALIDOMIDE
     Indication: PLASMA CELL MYELOMA
     Route: 048
     Dates: start: 20130930
  7. FILGRASTIM (FILGRASTIM) (INJECTION) [Concomitant]
  8. VITAMIN B12 ( CYANOCOBALAMIN) [Concomitant]
  9. VITAMIN D ( ERGOCALCIFEROL) [Concomitant]
  10. METOPROLOL SUCCINATE. [Concomitant]
     Active Substance: METOPROLOL SUCCINATE
  11. PROCHLORPERAZINE MELEATE [Concomitant]
  12. COLACE ( DOCUSATE SODIUM) [Concomitant]
  13. VELCADE [Concomitant]
     Active Substance: BORTEZOMIB
  14. ALFUZOSIN HCL (ALFUZOSIN HYDROCHLORIDE) [Concomitant]
  15. MULTIPLE VITAMINS W/MINERALS (NULL) [Concomitant]
  16. CARBOXYMETHYLCELLULOSE SODIUM (CARMELLOSE SODIUM) (DROPS)? [Concomitant]
  17. CALCIUM CARBONATE. [Concomitant]
     Active Substance: CALCIUM CARBONATE
  18. PANTOPRAZOLE [Concomitant]
     Active Substance: PANTOPRAZOLE SODIUM

REACTIONS (9)
  - Sinusitis [None]
  - White blood cell count decreased [None]
  - Oropharyngeal pain [None]
  - Productive cough [None]
  - Rhinorrhoea [None]
  - Pyrexia [None]
  - Nausea [None]
  - Unevaluable event [None]
  - Platelet count decreased [None]

NARRATIVE: CASE EVENT DATE: 20140415
